FAERS Safety Report 7286539-2 (Version None)
Quarter: 2011Q1

REPORT INFORMATION
  Report Type: 
  Country: None (occurrence: None)
  Receive Date: 20110210
  Receipt Date: 20110208
  Transmission Date: 20110831
  Serious: Yes (Hospitalization)
  Sender: FDA-Public Use
  Company Number: US-GILEAD-2011-0036217

PATIENT
  Sex: Male

DRUGS (1)
  1. CAYSTON [Suspect]
     Dates: start: 20110207

REACTIONS (2)
  - BRONCHOSPASM [None]
  - CHEST PAIN [None]
